FAERS Safety Report 16322671 (Version 1)
Quarter: 2019Q2

REPORT INFORMATION
  Report Type: Spontaneous
  Country: US (occurrence: US)
  Receive Date: 20190516
  Receipt Date: 20190516
  Transmission Date: 20190711
  Serious: No
  Sender: FDA-Public Use
  Company Number: US-ELI_LILLY_AND_COMPANY-US201904010969

PATIENT
  Sex: Female

DRUGS (4)
  1. TOPIRAMATE. [Concomitant]
     Active Substance: TOPIRAMATE
     Indication: MIGRAINE
     Dosage: 100 MG, UNKNOWN
     Route: 065
  2. EMGALITY [Suspect]
     Active Substance: GALCANEZUMAB-GNLM
     Indication: MIGRAINE
     Dosage: UNK UNK, UNKNOWN
     Route: 065
     Dates: start: 201902
  3. MOBIC [Concomitant]
     Active Substance: MELOXICAM
     Indication: MIGRAINE
     Dosage: 5 MG, UNKNOWN
     Route: 065
  4. ACETYLSALICYLIC ACID;BUTALBITAL;CAFFEINE;PHEN [Concomitant]
     Indication: MIGRAINE
     Dosage: UNK UNK, UNKNOWN
     Route: 065

REACTIONS (4)
  - Migraine [Not Recovered/Not Resolved]
  - Pain in jaw [Unknown]
  - Tooth disorder [Unknown]
  - Injection site haemorrhage [Recovered/Resolved]

NARRATIVE: CASE EVENT DATE: 201902
